FAERS Safety Report 4426852-7 (Version None)
Quarter: 2004Q3

REPORT INFORMATION
  Report Type: 
  Country: None (occurrence: None)
  Receive Date: 20040816
  Receipt Date: 20040715
  Transmission Date: 20050211
  Serious: Yes (Hospitalization)
  Sender: FDA-Public Use
  Company Number: PHBS2004NO09403

PATIENT
  Age: 38 Year
  Sex: Female

DRUGS (1)
  1. TEGRETOL [Suspect]
     Indication: POLYNEUROPATHY
     Dosage: 200 MG/NIGHT
     Route: 048
     Dates: start: 20040625, end: 20040701

REACTIONS (22)
  - ALANINE AMINOTRANSFERASE INCREASED [None]
  - ASPARTATE AMINOTRANSFERASE INCREASED [None]
  - BLOOD ALKALINE PHOSPHATASE INCREASED [None]
  - C-REACTIVE PROTEIN INCREASED [None]
  - FEELING ABNORMAL [None]
  - GAMMA-GLUTAMYLTRANSFERASE INCREASED [None]
  - HEADACHE [None]
  - LEUKOPENIA [None]
  - LIVER FUNCTION TEST ABNORMAL [None]
  - MEAN CELL VOLUME ABNORMAL [None]
  - NAUSEA [None]
  - NEUTROPHIL COUNT DECREASED [None]
  - NIGHT SWEATS [None]
  - NITRITE URINE PRESENT [None]
  - PAIN IN EXTREMITY [None]
  - PYREXIA [None]
  - RASH [None]
  - RED BLOOD CELL SEDIMENTATION RATE INCREASED [None]
  - SEPSIS [None]
  - SERUM FERRITIN INCREASED [None]
  - TENDERNESS [None]
  - URTICARIA [None]
